FAERS Safety Report 17259942 (Version 2)
Quarter: 2020Q1

REPORT INFORMATION
  Report Type: Report from Study
  Country: US (occurrence: US)
  Receive Date: 20200111
  Receipt Date: 20200112
  Transmission Date: 20200409
  Serious: Yes (Hospitalization, Other)
  Sender: FDA-Public Use
  Company Number: US-AMGEN-USACT2020002025

PATIENT
  Age: 41 Year
  Sex: Female
  Weight: 96.18 kg

DRUGS (12)
  1. DEXAMETHASONE. [Concomitant]
     Active Substance: DEXAMETHASONE
     Dosage: UNK
  2. SINGULAIR [Concomitant]
     Active Substance: MONTELUKAST SODIUM
     Dosage: 10 MILLIGRAM, Q2WK
     Dates: start: 20191211
  3. ALLOPURINOL [ALLOPURINOL SODIUM] [Concomitant]
     Dosage: 300 MILLIGRAM, QD
     Dates: start: 20191212
  4. FEXOFENADINE [Concomitant]
     Active Substance: FEXOFENADINE HYDROCHLORIDE
     Dosage: 180 MILLIGRAM, QD
     Dates: start: 201901
  5. MORPHINE [Concomitant]
     Active Substance: MORPHINE
     Indication: PAIN
     Dosage: 15 MILLIGRAM, BID, Q6H AS NECESSARY
     Dates: start: 20191212
  6. ZOFRAN [Concomitant]
     Active Substance: ONDANSETRON HYDROCHLORIDE
     Indication: NAUSEA
     Dosage: 8 MILLIGRAM, TID (AS NEEDED)
     Dates: start: 20101212
  7. ZOMETA [Concomitant]
     Active Substance: ZOLEDRONIC ACID
     Dosage: 4 MILLIGRAM, Q4WK
     Route: 042
     Dates: start: 20191219
  8. CARFILZOMIB [Suspect]
     Active Substance: CARFILZOMIB
     Indication: PLASMA CELL MYELOMA
     Dosage: UNK UNK, PER CHEMO REGIM
     Route: 065
  9. CYCLOBENZAPRINE. [Concomitant]
     Active Substance: CYCLOBENZAPRINE
     Dosage: UNK, BID
     Dates: start: 201901
  10. PERCOCET [OXYCODONE HYDROCHLORIDE;OXYCODONE TEREPHTHALATE;PARACETAMOL] [Concomitant]
     Active Substance: ACETAMINOPHEN\OXYCODONE HYDROCHLORIDE\OXYCODONE TEREPHTHALATE
     Dosage: 10325 MILLIGRAM, Q6H
     Dates: start: 201910
  11. DARATUMUMAB [Concomitant]
     Active Substance: DARATUMUMAB
     Dosage: UNK
  12. ACYCLOVIR [ACICLOVIR] [Concomitant]
     Active Substance: ACYCLOVIR
     Dosage: 400 MILLIGRAM, BID
     Dates: start: 20191212

REACTIONS (2)
  - Streptococcal bacteraemia [Unknown]
  - Pancytopenia [Unknown]

NARRATIVE: CASE EVENT DATE: 20191228
